FAERS Safety Report 13319708 (Version 1)
Quarter: 2017Q1

REPORT INFORMATION
  Report Type: Spontaneous
  Country: US (occurrence: US)
  Receive Date: 20170309
  Receipt Date: 20170309
  Transmission Date: 20170428
  Serious: No
  Sender: FDA-Public Use
  Company Number: US-TEVA-660460USA

PATIENT
  Age: 69 Year
  Sex: Female

DRUGS (3)
  1. BUSPIRONE [Suspect]
     Active Substance: BUSPIRONE HYDROCHLORIDE
     Indication: IRRITABLE BOWEL SYNDROME
     Route: 065
     Dates: start: 201601
  2. VESICARE [Interacting]
     Active Substance: SOLIFENACIN SUCCINATE
     Indication: INCONTINENCE
     Dosage: 10 MILLIGRAM DAILY;
     Route: 065
     Dates: start: 2015
  3. VESICARE [Interacting]
     Active Substance: SOLIFENACIN SUCCINATE
     Dosage: 10 MILLIGRAM DAILY;
     Dates: start: 20160112

REACTIONS (4)
  - Drug interaction [Unknown]
  - Depression [Unknown]
  - Drug ineffective [Unknown]
  - Irritable bowel syndrome [Unknown]
